FAERS Safety Report 9403516 (Version 2)
Quarter: 2016Q2

REPORT INFORMATION
  Report Type: Report from Study
  Country: US (occurrence: US)
  Receive Date: 20130716
  Receipt Date: 20160427
  Transmission Date: 20160815
  Serious: Yes (Life-Threatening)
  Sender: FDA-Public Use
  Company Number: US-009507513-1307USA006407

PATIENT

DRUGS (5)
  1. TEMODAR [Suspect]
     Active Substance: TEMOZOLOMIDE
     Dosage: PART B: 12 CYCLES, 200 MG/M2 ON DAYS 1-5 OF A 28 DAY CYCLE
  2. CARMUSTINE [Suspect]
     Active Substance: CARMUSTINE
     Indication: GLIOBLASTOMA
  3. TEMODAR [Suspect]
     Active Substance: TEMOZOLOMIDE
     Indication: GLIOBLASTOMA
     Dosage: PART A: 75 MG/M2, QD
  4. BEVACIZUMAB [Suspect]
     Active Substance: BEVACIZUMAB
     Indication: GLIOBLASTOMA
     Dosage: PART A: 10 MG/KG EVERY TWO WEEKS STARTED AT LEAST 28 DAYS POST OPERATIVELY
  5. BEVACIZUMAB [Suspect]
     Active Substance: BEVACIZUMAB
     Dosage: PARTB: EVERY TWO WEEKS (DAY 1 AND15)

REACTIONS (1)
  - Fatigue [Unknown]
